FAERS Safety Report 8255484-8 (Version None)
Quarter: 2012Q2

REPORT INFORMATION
  Report Type: 
  Country: None (occurrence: None)
  Receive Date: 20120403
  Receipt Date: 20120316
  Transmission Date: 20120825
  Serious: No
  Sender: FDA-Public Use
  Company Number: US-B.I. PHARMACEUTICALS,INC./RIDGEFIELD-2010-BP-06336BP

PATIENT
  Sex: Female
  Weight: 49.9 kg

DRUGS (1)
  1. MIRAPEX [Suspect]
     Indication: PARKINSON'S DISEASE
     Dates: start: 19970701

REACTIONS (12)
  - ROAD TRAFFIC ACCIDENT [None]
  - DEPRESSION [None]
  - MENTAL DISORDER [None]
  - CONCUSSION [None]
  - PATHOLOGICAL GAMBLING [None]
  - OBSESSIVE-COMPULSIVE DISORDER [None]
  - PAIN [None]
  - SOMNOLENCE [None]
  - HYPOTENSION [None]
  - MANIA [None]
  - EMOTIONAL DISTRESS [None]
  - ANXIETY [None]
